FAERS Safety Report 9217615 (Version 1)
Quarter: 2013Q2

REPORT INFORMATION
  Report Type: Spontaneous
  Country: US (occurrence: US)
  Receive Date: 20130408
  Receipt Date: 20130408
  Transmission Date: 20140414
  Serious: Yes (Other)
  Sender: FDA-Public Use
  Company Number: US-BAYER-2013-042044

PATIENT
  Sex: 0

DRUGS (3)
  1. ALKA-SELTZER ORIGINAL [Suspect]
     Dosage: UNK
     Dates: start: 20130329
  2. THERAFLU [Concomitant]
     Dosage: UNK
     Dates: start: 20130329
  3. TYLENOL [Concomitant]
     Dosage: UNK
     Dates: start: 20130329

REACTIONS (2)
  - Aphagia [None]
  - Speech disorder [None]
